FAERS Safety Report 12874021 (Version 1)
Quarter: 2016Q4

REPORT INFORMATION
  Report Type: Report from Study
  Country: TR (occurrence: TR)
  Receive Date: 20161021
  Receipt Date: 20161021
  Transmission Date: 20170207
  Serious: Yes (Other)
  Sender: FDA-Public Use
  Company Number: TR-EMD SERONO-8113566

PATIENT
  Age: 36 Year
  Sex: Female

DRUGS (3)
  1. PAROL [Concomitant]
     Active Substance: ACETAMINOPHEN
     Indication: PAIN
  2. PAROL [Concomitant]
     Active Substance: ACETAMINOPHEN
     Indication: PYREXIA
  3. REBIF [Suspect]
     Active Substance: INTERFERON BETA-1A
     Indication: MULTIPLE SCLEROSIS
     Dates: start: 20130901

REACTIONS (1)
  - Toxic goitre [Not Recovered/Not Resolved]

NARRATIVE: CASE EVENT DATE: 201610
